FAERS Safety Report 9980742 (Version 1)
Quarter: 2014Q1

REPORT INFORMATION
  Report Type: Report from Study
  Country: FR (occurrence: FR)
  Receive Date: 20140307
  Receipt Date: 20140307
  Transmission Date: 20141002
  Serious: Yes (Hospitalization)
  Sender: FDA-Public Use
  Company Number: FR-ROCHE-1355023

PATIENT
  Sex: Female

DRUGS (10)
  1. RITUXIMAB [Suspect]
     Indication: RHEUMATOID ARTHRITIS
     Route: 065
     Dates: start: 20080801
  2. RITUXIMAB [Suspect]
     Route: 065
     Dates: start: 20080813
  3. RITUXIMAB [Suspect]
     Route: 065
     Dates: start: 20090520
  4. RITUXIMAB [Suspect]
     Route: 065
     Dates: start: 20090604
  5. RITUXIMAB [Suspect]
     Route: 065
     Dates: start: 20091216
  6. RITUXIMAB [Suspect]
     Route: 065
     Dates: start: 20091230
  7. TOCILIZUMAB [Suspect]
     Indication: RHEUMATOID ARTHRITIS
     Route: 065
     Dates: start: 20101019
  8. TOCILIZUMAB [Suspect]
     Route: 065
     Dates: start: 20121009
  9. SOLU-MEDROL [Suspect]
     Indication: PREMEDICATION
     Route: 065
  10. METHOTREXATE [Concomitant]
     Route: 065

REACTIONS (9)
  - Infusion related reaction [Recovered/Resolved]
  - Bronchitis [Unknown]
  - Back pain [Recovered/Resolved]
  - Carpal tunnel syndrome [Recovered/Resolved]
  - Chest pain [Not Recovered/Not Resolved]
  - Groin pain [Not Recovered/Not Resolved]
  - Cough [Not Recovered/Not Resolved]
  - Dermal cyst [Recovered/Resolved]
  - Macular oedema [Recovered/Resolved]
